FAERS Safety Report 15235211 (Version 1)
Quarter: 2018Q3

REPORT INFORMATION
  Report Type: Spontaneous
  Country: US (occurrence: US)
  Receive Date: 20180709
  Receipt Date: 20180709
  Transmission Date: 20181010
  Serious: Yes (Hospitalization)
  Sender: FDA-Public Use
  Company Number: None

PATIENT
  Age: 68 Year
  Sex: Male
  Weight: 60.01 kg

DRUGS (1)
  1. CEFEPIME [Suspect]
     Active Substance: CEFEPIME HYDROCHLORIDE
     Indication: UPPER RESPIRATORY TRACT INFECTION
     Route: 042
     Dates: start: 20180608, end: 20180620

REACTIONS (5)
  - Neurotoxicity [None]
  - Tremor [None]
  - Confusional state [None]
  - Encephalopathy [None]
  - Renal impairment [None]

NARRATIVE: CASE EVENT DATE: 20180620
